FAERS Safety Report 6752548-2 (Version None)
Quarter: 2010Q2

REPORT INFORMATION
  Report Type: 
  Country: None (occurrence: None)
  Receive Date: 20100602
  Receipt Date: 20100527
  Transmission Date: 20101027
  Serious: Yes (Hospitalization)
  Sender: FDA-Public Use
  Company Number: US-GILEAD-2010-0028798

PATIENT
  Sex: Female
  Weight: 82.628 kg

DRUGS (12)
  1. LETAIRIS [Suspect]
     Indication: PULMONARY ARTERIAL HYPERTENSION
     Route: 048
     Dates: start: 20100203
  2. HYZAAR [Concomitant]
  3. ALBUTEROL [Concomitant]
  4. SPIRIVA [Concomitant]
  5. SYMBICORT [Concomitant]
  6. THEO-24 [Concomitant]
  7. DOXYCYCLINE [Concomitant]
  8. JANUVIA [Concomitant]
  9. GLIPIZIDE [Concomitant]
  10. ZITHROMAX [Concomitant]
  11. ITRACONAZOLE [Concomitant]
  12. POTASSIUM CHLORIDE [Concomitant]

REACTIONS (1)
  - CHRONIC OBSTRUCTIVE PULMONARY DISEASE [None]
